FAERS Safety Report 4562601-X (Version None)
Quarter: 2005Q1

REPORT INFORMATION
  Report Type: 
  Country: None (occurrence: None)
  Receive Date: 20050127
  Receipt Date: 20041117
  Transmission Date: 20050727
  Serious: Yes (Life-Threatening, Hospitalization)
  Sender: FDA-Public Use
  Company Number: US-ROCHE-386609

PATIENT
  Age: 54 Year
  Sex: Male
  Weight: 80.5 kg

DRUGS (6)
  1. PEG-INTERFERON ALFA 2A (RO 25-8310) [Suspect]
     Route: 058
     Dates: start: 20040628, end: 20040824
  2. RIBAVIRIN [Suspect]
     Dosage: TAKEN DAILY.
     Route: 048
     Dates: start: 20040628, end: 20040824
  3. PAXIL [Concomitant]
     Dates: start: 20040713, end: 20040819
  4. AMBIEN [Concomitant]
     Dates: start: 20040713
  5. XANAX [Concomitant]
     Dates: start: 20040819, end: 20040919
  6. CELEXA [Concomitant]
     Dates: start: 20040819

REACTIONS (4)
  - DISTURBANCE IN ATTENTION [None]
  - FATIGUE [None]
  - HOMICIDAL IDEATION [None]
  - SUICIDAL IDEATION [None]
